FAERS Safety Report 23470882 (Version 3)
Quarter: 2024Q1

REPORT INFORMATION
  Report Type: Spontaneous
  Country: JP (occurrence: JP)
  Receive Date: 20240202
  Receipt Date: 20240318
  Transmission Date: 20240410
  Serious: Yes (Hospitalization)
  Sender: FDA-Public Use
  Company Number: JP-MPKK-JPN202400075_P_1

PATIENT
  Age: 88 Year
  Sex: Female

DRUGS (1)
  1. NORSPAN [Suspect]
     Active Substance: BUPRENORPHINE
     Indication: Pain
     Dosage: 10 MCG/HR(2 X 5MG), WEEKLY
     Route: 062

REACTIONS (2)
  - Osteoarthritis [Unknown]
  - Drug withdrawal syndrome [Not Recovered/Not Resolved]
